FAERS Safety Report 21343375 (Version 2)
Quarter: 2022Q4

REPORT INFORMATION
  Report Type: Spontaneous
  Country: FR (occurrence: FR)
  Receive Date: 20220916
  Receipt Date: 20221013
  Transmission Date: 20230112
  Serious: Yes (Other)
  Sender: FDA-Public Use
  Company Number: None

PATIENT
  Age: 76 Year
  Sex: Male
  Weight: 81 kg

DRUGS (16)
  1. AMLODIPINE [Suspect]
     Active Substance: AMLODIPINE BESYLATE
     Indication: Hypertension
     Dosage: UNIT DOSE : 5 MG , FREQUENCY TIME : 1 DAY , THERAPY START DATE : ASKU
     Route: 065
  2. ATORVASTATIN [Suspect]
     Active Substance: ATORVASTATIN
     Indication: Dyslipidaemia
     Dosage: UNIT DOSE : 40 MG   , FREQUENCY TIME : 1 DAY   , THERAPY END  DATE : NASK
     Dates: start: 202108
  3. BISOPROLOL FUMARATE [Suspect]
     Active Substance: BISOPROLOL FUMARATE
     Indication: Hypertension
     Dosage: BISOPROLOL (FUMARATE ACIDE DE) , UNIT DOSE : 5 MG  , FREQUENCY TIME :1 DAY   ,THERAPY START DATE : A
  4. CLOPIDOGREL [Suspect]
     Active Substance: CLOPIDOGREL BISULFATE
     Indication: Cardiovascular event prophylaxis
     Dosage: UNIT DOSE : 75 MG   , FREQUENCY TIME :  1 DAY ,THERAPY START DATE : ASKU
  5. FUROSEMIDE [Suspect]
     Active Substance: FUROSEMIDE
     Indication: Hypertension
     Dosage: UNIT DOSE :40 MG   , FREQUENCY TIME : 1 DAY  ,THERAPY END  DATE : NASK
     Dates: start: 202101
  6. ACETAMINOPHEN [Suspect]
     Active Substance: ACETAMINOPHEN
     Indication: Pain
     Dosage: UNIT DOSE : 1 DF  , FREQUENCY TIME : 1 AS REQUIRED  ,THERAPY END  DATE : NASK
     Route: 065
     Dates: start: 202101
  7. VENLAFAXINE [Suspect]
     Active Substance: VENLAFAXINE HYDROCHLORIDE
     Indication: Depression
     Dosage: UNIT DOSE : 75 MG  , FREQUENCY TIME : 1 DAY  ,THERAPY END  DATE : NASK
     Dates: start: 202101
  8. POTASSIUM CHLORIDE [Suspect]
     Active Substance: POTASSIUM CHLORIDE
     Indication: Hypokalaemia
     Dosage: UNIT DOSE :1800 MG   , FREQUENCY TIME : 1 DAY   ,THERAPY END DATE : NASK
     Dates: start: 202101
  9. VITAMIN B12 [Suspect]
     Active Substance: CYANOCOBALAMIN
     Indication: Vitamin B12 deficiency
     Dosage: UNIT DOSE :2 DF   , FREQUENCY TIME : 1 WEEKS ,   THERAPY END DATE : NASK
     Dates: start: 202112
  10. HYDROCORTISONE [Suspect]
     Active Substance: HYDROCORTISONE
     Indication: Cortisol decreased
     Dosage: UNIT DOSE :20 MG   , FREQUENCY TIME :  1 DAY , THERAPY END DATE : NASK
     Dates: start: 202111
  11. PENICILLIN V [Suspect]
     Active Substance: PENICILLIN V
     Indication: Antibiotic prophylaxis
     Dosage: 1,000,000 IU/10 ML, ORAL SUSPENSION , UNIT DOSE : 2 DF  , FREQUENCY TIME : 1 DAY   , THERAPY END DAT
     Dates: start: 202112
  12. LEVOTHYROXINE [Suspect]
     Active Substance: LEVOTHYROXINE
     Indication: Thyroid disorder
     Dosage: FORM STRENGTH : 50 MICROGRAMS, SCORED TABLET , UNIT DOSE : 1 DF   , FREQUENCY TIME :  1 DAY  , THERA
     Dates: start: 202106
  13. IPRATROPIUM BROMIDE\FENOTEROL HYDROBROMIDE [Suspect]
     Active Substance: FENOTEROL HYDROBROMIDE\IPRATROPIUM BROMIDE
     Indication: Chronic obstructive pulmonary disease
     Dosage: 100 MICROGRAMS/40 MICROGRAMS  , UNIT DOSE : 1 DF   , FREQUENCY TIME : 1 DAY   , THERAPY END DATE : N
     Dates: start: 202112
  14. JANUVIA [Suspect]
     Active Substance: SITAGLIPTIN PHOSPHATE
     Indication: Type 2 diabetes mellitus
     Dosage: UNIT DOSE : 1000 MG , FREQUENCY TIME : 1 DAY , THERAPY START DATE : ASKU
  15. ISTODAX [Suspect]
     Active Substance: ROMIDEPSIN
     Indication: Cutaneous T-cell lymphoma
     Dosage: FORM STRENGTH : 10  MG ,  UNIT DOSE :53.1 MG   , FREQUENCY TIME : 1 MONTH ,  THERAPY END DATE : NASK
     Dates: start: 20220221
  16. CHOLECALCIFEROL [Suspect]
     Active Substance: CHOLECALCIFEROL
     Indication: Vitamin D deficiency
     Dosage: FORM STRENGTH : 50,000 IU, ORAL SOLUTION IN AMPOULE , UNIT DOSE : 1 DF , FREQUENCY TIME : 1 MONTH ,

REACTIONS (1)
  - Mouth ulceration [Recovering/Resolving]

NARRATIVE: CASE EVENT DATE: 20220725
